FAERS Safety Report 5122684-5 (Version None)
Quarter: 2006Q4

REPORT INFORMATION
  Report Type: 
  Country: None (occurrence: None)
  Receive Date: 20061009
  Receipt Date: 20060926
  Transmission Date: 20070319
  Serious: Yes (Other)
  Sender: FDA-Public Use
  Company Number: PHEH2006US12291

PATIENT
  Age: 65 Year
  Sex: Male

DRUGS (1)
  1. EXJADE [Suspect]
     Dosage: 1.5 G, UNK
     Dates: start: 20060724

REACTIONS (3)
  - ABDOMINAL PAIN [None]
  - ANOREXIA [None]
  - WEIGHT DECREASED [None]
